FAERS Safety Report 20849090 (Version 1)
Quarter: 2022Q2

REPORT INFORMATION
  Report Type: Spontaneous
  Country: ES (occurrence: ES)
  Receive Date: 20220519
  Receipt Date: 20220519
  Transmission Date: 20220721
  Serious: Yes (Hospitalization, Other)
  Sender: FDA-Public Use
  Company Number: ES-SCALL-2022-ES-000063

PATIENT
  Age: 63 Year
  Sex: Male

DRUGS (3)
  1. DUTASTERIDE\TAMSULOSIN HYDROCHLORIDE [Suspect]
     Active Substance: DUTASTERIDE\TAMSULOSIN HYDROCHLORIDE
     Indication: Benign prostatic hyperplasia
     Dosage: 0.5 MG/0.4 MG
     Route: 065
  2. LORAZEPAM [Suspect]
     Active Substance: LORAZEPAM
     Dosage: 5 M, FOR ABOUT FIFETEEN YEARS
     Route: 065
  3. CIALIS [Suspect]
     Active Substance: TADALAFIL
     Route: 065

REACTIONS (7)
  - COVID-19 [Unknown]
  - Erectile dysfunction [Unknown]
  - Pneumonia [Unknown]
  - Visual impairment [Unknown]
  - Nocturia [Unknown]
  - Lung disorder [Unknown]
  - Sleep disorder [Unknown]
